FAERS Safety Report 4345857-8 (Version None)
Quarter: 2004Q2

REPORT INFORMATION
  Report Type: 
  Country: None (occurrence: None)
  Receive Date: 20040423
  Receipt Date: 20040423
  Transmission Date: 20050107
  Serious: Yes (Disabling)
  Sender: FDA-Public Use
  Company Number: None

PATIENT
  Age: 82 Year
  Sex: Male
  Weight: 76 kg

DRUGS (1)
  1. ENOXAPARIN SODIUM [Suspect]
     Indication: ACUTE MYOCARDIAL INFARCTION
     Dosage: 80 MG Q12H SUBCUTANEOUS
     Route: 058
     Dates: start: 20031029, end: 20031030

REACTIONS (2)
  - COMA [None]
  - SUBDURAL HAEMATOMA [None]
